FAERS Safety Report 6398655-8 (Version None)
Quarter: 2009Q4

REPORT INFORMATION
  Report Type: 
  Country: None (occurrence: None)
  Receive Date: 20091013
  Receipt Date: 20091007
  Transmission Date: 20100525
  Serious: Yes (Other)
  Sender: FDA-Public Use
  Company Number: CA-MERCK-0910CAN00024

PATIENT
  Age: 24 Year
  Sex: Female

DRUGS (3)
  1. JANUVIA [Suspect]
     Route: 048
     Dates: start: 20090601
  2. DIVALPROEX SODIUM [Concomitant]
     Indication: CONVULSION
     Route: 065
  3. REPAGLINIDE [Concomitant]
     Route: 065

REACTIONS (1)
  - CONVULSION [None]
